FAERS Safety Report 23756927 (Version 1)
Quarter: 2024Q2

REPORT INFORMATION
  Report Type: Spontaneous
  Country: CN (occurrence: CN)
  Receive Date: 20240418
  Receipt Date: 20240418
  Transmission Date: 20240716
  Serious: Yes (Death, Other)
  Sender: FDA-Public Use
  Company Number: CN-OTSUKA-2024_011064

PATIENT

DRUGS (13)
  1. BUSULFAN [Suspect]
     Active Substance: BUSULFAN
     Indication: Stem cell transplant
     Dosage: 3.2 MG/KG, QD (3.2?MG/(KG/D) FROM DAYS 8 TO 6
     Route: 042
  2. BUSULFAN [Suspect]
     Active Substance: BUSULFAN
     Indication: Bone marrow conditioning regimen
  3. FLUDARABINE [Suspect]
     Active Substance: FLUDARABINE PHOSPHATE
     Indication: Stem cell transplant
     Dosage: 30?MG/M 2 FROM DAYS 6 TO 4, WITH A TOTAL DOSE OF 90?MG/M 2
     Route: 065
  4. FLUDARABINE [Suspect]
     Active Substance: FLUDARABINE PHOSPHATE
     Indication: Bone marrow conditioning regimen
  5. CYCLOPHOSPHAMIDE [Suspect]
     Active Substance: CYCLOPHOSPHAMIDE
     Indication: Stem cell transplant
     Dosage: 50 MG/KG, QD (50?MG/(KG/D) FROM DAYS 5 TO 2 WITH A TOTAL DOSE OF 200?MG/KG)
     Route: 065
  6. CYCLOPHOSPHAMIDE [Suspect]
     Active Substance: CYCLOPHOSPHAMIDE
     Indication: Bone marrow conditioning regimen
  7. LAPINE T-LYMPHOCYTE IMMUNE GLOBULIN [Suspect]
     Active Substance: LAPINE T-LYMPHOCYTE IMMUNE GLOBULIN
     Indication: Stem cell transplant
     Dosage: 2.5 MG/KG, QD (2.5?MG/(KG/D) FROM DAYS 5 TO 2, WITH A TOTAL DOSE OF 10?MG/KG)
     Route: 042
  8. LAPINE T-LYMPHOCYTE IMMUNE GLOBULIN [Suspect]
     Active Substance: LAPINE T-LYMPHOCYTE IMMUNE GLOBULIN
     Indication: Bone marrow conditioning regimen
  9. CYCLOSPORINE [Suspect]
     Active Substance: CYCLOSPORINE
     Indication: Prophylaxis against graft versus host disease
     Dosage: 2.5 MG/KG, QD (2.5?MG/(KG/D) STARTED 9 BEFORE TRANSPLANTATION
     Route: 065
  10. MYCOPHENOLATE MOFETIL [Suspect]
     Active Substance: MYCOPHENOLATE MOFETIL
     Indication: Prophylaxis against graft versus host disease
     Dosage: 1 G, QD WAS STARTED ON DAY 9
     Route: 065
  11. METHOTREXATE [Suspect]
     Active Substance: METHOTREXATE
     Indication: Prophylaxis against graft versus host disease
     Dosage: 15 MG/M2 (ADMINISTERED ON DAY 1 AFTER THE TRANSPLANTATION)
     Route: 065
  12. METHOTREXATE [Suspect]
     Active Substance: METHOTREXATE
     Dosage: 10 MG/M2 ( ADMINISTERED ON DAYS 3, 5, AND 11 AFTER THE TRANSPLANTATION)
     Route: 065
  13. GRANULOCYTE COLONY-STIMULATING FACTOR NOS [Suspect]
     Active Substance: GRANULOCYTE COLONY-STIMULATING FACTOR NOS
     Indication: Chemotherapy cytokine prophylaxis
     Dosage: 5 ?G/KG, QD (5??G/KG/D STARTING ON DAY 6 AFTER THE TRANSPLANTATION)
     Route: 065

REACTIONS (2)
  - Myocarditis [Fatal]
  - Product administered to patient of inappropriate age [Unknown]
